FAERS Safety Report 4851709-7 (Version None)
Quarter: 2005Q4

REPORT INFORMATION
  Report Type: 
  Country: None (occurrence: None)
  Receive Date: 20051213
  Receipt Date: 20051011
  Transmission Date: 20060501
  Serious: Yes (Hospitalization, Disabling, Other)
  Sender: FDA-Public Use
  Company Number: GB-BOEHRINGER INGELHEIM PHARMACEUTICALS, INC.-2005-UK-02014UK

PATIENT
  Age: 81 Year
  Sex: Male
  Weight: 66 kg

DRUGS (5)
  1. DIPYRIDAMOLE [Suspect]
     Indication: CEREBROVASCULAR ACCIDENT
     Route: 048
     Dates: start: 20050710, end: 20050714
  2. SIMVASTATIN [Concomitant]
     Indication: CEREBROVASCULAR ACCIDENT
     Dosage: 10 MG NOCTE
     Route: 048
  3. ENALAPRIL [Concomitant]
     Indication: HYPERTENSION
     Dosage: 5 MG TWICE DAILY
     Route: 048
  4. ASPIRIN [Concomitant]
     Indication: CEREBROVASCULAR ACCIDENT
     Route: 048
  5. QUININE SULPHATE [Concomitant]
     Indication: MUSCLE SPASMS
     Dosage: 300 MG ONCE DAILY
     Route: 048

REACTIONS (3)
  - DIARRHOEA [None]
  - MALAISE [None]
  - WEIGHT DECREASED [None]
